FAERS Safety Report 12758551 (Version 1)
Quarter: 2016Q3

REPORT INFORMATION
  Report Type: Report from Study
  Country: US (occurrence: US)
  Receive Date: 20160919
  Receipt Date: 20160919
  Transmission Date: 20161109
  Serious: No
  Sender: FDA-Public Use
  Company Number: PHEH2016US023065

PATIENT
  Sex: Female

DRUGS (1)
  1. GILENYA [Suspect]
     Active Substance: FINGOLIMOD HYDROCHLORIDE
     Indication: PRODUCT USED FOR UNKNOWN INDICATION
     Dosage: UNK UNK, QD
     Route: 065
     Dates: start: 20160801, end: 20160912

REACTIONS (9)
  - Stomatitis [Unknown]
  - Back pain [Unknown]
  - Feeling abnormal [Unknown]
  - Memory impairment [Unknown]
  - Oropharyngeal pain [Unknown]
  - Headache [Unknown]
  - Sinusitis [Unknown]
  - Dyspnoea [Unknown]
  - Eye pain [Unknown]
